FAERS Safety Report 14256189 (Version 5)
Quarter: 2018Q1

REPORT INFORMATION
  Report Type: Spontaneous
  Country: TW (occurrence: TW)
  Receive Date: 20171206
  Receipt Date: 20180108
  Transmission Date: 20180508
  Serious: Yes (Death, Hospitalization)
  Sender: FDA-Public Use
  Company Number: TW-JNJFOC-20171206070

PATIENT
  Age: 83 Year
  Sex: Male
  Weight: 53.4 kg

DRUGS (44)
  1. PANTOLOC [Concomitant]
     Active Substance: PANTOPRAZOLE SODIUM
     Route: 042
     Dates: start: 20171114, end: 20171125
  2. NEOMYCIN. [Concomitant]
     Active Substance: NEOMYCIN
     Route: 061
     Dates: start: 20171030, end: 20171113
  3. CHLORPHENIRAMINE. [Concomitant]
     Active Substance: CHLORPHENIRAMINE
     Dosage: 5MG/1ML
     Route: 042
     Dates: start: 20171113, end: 20171114
  4. ZYTIGA [Suspect]
     Active Substance: ABIRATERONE ACETATE
     Indication: PROSTATE CANCER
     Route: 048
     Dates: start: 20150306
  5. CHLORPHENIRAMINE. [Concomitant]
     Active Substance: CHLORPHENIRAMINE
     Dosage: 5MG/1ML
     Route: 042
     Dates: start: 20171106, end: 20171107
  6. CHLORPHENIRAMINE. [Concomitant]
     Active Substance: CHLORPHENIRAMINE
     Dosage: 5MG/1ML
     Route: 042
     Dates: start: 20171108, end: 20171109
  7. NORMAL SALINE [Concomitant]
     Active Substance: SODIUM CHLORIDE
     Route: 041
     Dates: start: 20171120, end: 20171121
  8. LASIX [Concomitant]
     Active Substance: FUROSEMIDE
     Dosage: 20 MG/2 ML
     Route: 042
     Dates: start: 20171120, end: 20171121
  9. NORMAL SALINE [Concomitant]
     Active Substance: SODIUM CHLORIDE
     Route: 041
     Dates: start: 20171117, end: 20171118
  10. ZYTIGA [Suspect]
     Active Substance: ABIRATERONE ACETATE
     Indication: PROSTATE CANCER
     Route: 048
     Dates: start: 20171116, end: 20171128
  11. PANTOLOC [Concomitant]
     Active Substance: PANTOPRAZOLE SODIUM
     Route: 042
     Dates: start: 20171026, end: 20171101
  12. HYDROCORTISONE. [Concomitant]
     Active Substance: HYDROCORTISONE
     Route: 054
     Dates: start: 20171107, end: 20171114
  13. NORMAL SALINE [Concomitant]
     Active Substance: SODIUM CHLORIDE
     Route: 041
     Dates: start: 20171111, end: 20171112
  14. KASCOAL [Concomitant]
     Route: 048
     Dates: start: 20171108, end: 20171109
  15. PLAVIX [Concomitant]
     Active Substance: CLOPIDOGREL BISULFATE
     Route: 065
  16. ZYTIGA [Suspect]
     Active Substance: ABIRATERONE ACETATE
     Indication: PROSTATE CANCER
     Route: 048
     Dates: start: 20150617
  17. CEFMETAZOLE [Concomitant]
     Active Substance: CEFMETAZOLE
     Route: 042
     Dates: start: 20171026, end: 20171109
  18. HYDROCORTISONE. [Concomitant]
     Active Substance: HYDROCORTISONE
     Route: 054
     Dates: start: 20171102, end: 20171107
  19. MEGEST [Concomitant]
     Dosage: 40 MG/ML 120 ML
     Route: 048
     Dates: start: 20171105, end: 20171120
  20. CHLORPHENIRAMINE. [Concomitant]
     Active Substance: CHLORPHENIRAMINE
     Dosage: 5MG/1ML
     Route: 042
     Dates: start: 20171110, end: 20171111
  21. CHLORPHENIRAMINE. [Concomitant]
     Active Substance: CHLORPHENIRAMINE
     Dosage: 5MG/1ML
     Route: 042
     Dates: start: 20171120, end: 20171121
  22. ULTRACET [Concomitant]
     Active Substance: ACETAMINOPHEN\TRAMADOL HYDROCHLORIDE
     Route: 048
     Dates: start: 20171109, end: 20171122
  23. LASIX [Concomitant]
     Active Substance: FUROSEMIDE
     Dosage: 20 MG/2 ML
     Route: 042
     Dates: start: 20171114, end: 20171115
  24. LASIX [Concomitant]
     Active Substance: FUROSEMIDE
     Dosage: 20 MG/2 ML
     Route: 042
     Dates: start: 20171116, end: 20171116
  25. LASIX [Concomitant]
     Active Substance: FUROSEMIDE
     Dosage: 20 MG/2 ML
     Route: 042
     Dates: start: 20171116, end: 20171117
  26. FLAGYL [Concomitant]
     Active Substance: METRONIDAZOLE\METRONIDAZOLE HYDROCHLORIDE
     Route: 048
     Dates: start: 20171031, end: 20171114
  27. MEGEST [Concomitant]
     Dosage: 40 MG/ML 120 ML
     Route: 048
     Dates: start: 20171120, end: 20171129
  28. NORMAL SALINE [Concomitant]
     Active Substance: SODIUM CHLORIDE
     Route: 041
     Dates: start: 20171110, end: 20171111
  29. LASIX [Concomitant]
     Active Substance: FUROSEMIDE
     Dosage: 20 MG/2 ML
     Route: 042
     Dates: start: 20171115, end: 20171116
  30. TRANSAMIN [Concomitant]
     Active Substance: TRANEXAMIC ACID
     Dosage: 250 MG/5 ML
     Route: 042
     Dates: start: 20171026, end: 20171109
  31. NORMAL SALINE [Concomitant]
     Active Substance: SODIUM CHLORIDE
     Route: 041
     Dates: start: 20171106, end: 20171107
  32. GOWELL [Concomitant]
     Route: 048
     Dates: start: 20171109, end: 20171122
  33. LASIX [Concomitant]
     Active Substance: FUROSEMIDE
     Dosage: 20 MG/2 ML
     Route: 042
     Dates: start: 20171113, end: 20171114
  34. LASIX [Concomitant]
     Active Substance: FUROSEMIDE
     Dosage: 20 MG/2 ML
     Route: 042
     Dates: start: 20171118, end: 20171121
  35. ZYTIGA [Suspect]
     Active Substance: ABIRATERONE ACETATE
     Indication: PROSTATE CANCER
     Route: 048
     Dates: start: 20171109, end: 20171116
  36. SMECTA [Concomitant]
     Active Substance: MONTMORILLONITE
     Route: 048
     Dates: start: 20171031, end: 20171108
  37. PANTOLOC [Concomitant]
     Active Substance: PANTOPRAZOLE SODIUM
     Route: 042
     Dates: start: 20171101, end: 20171114
  38. MENTAX [Concomitant]
     Active Substance: BUTENAFINE HYDROCHLORIDE
     Route: 061
     Dates: start: 20171103, end: 20171117
  39. NERISONE [Concomitant]
     Active Substance: DIFLUCORTOLONE VALERATE
     Route: 061
     Dates: start: 20171103, end: 20171117
  40. HYDROCORTISONE. [Concomitant]
     Active Substance: HYDROCORTISONE
     Route: 054
     Dates: start: 20171107, end: 20171108
  41. HYDROCORTISONE. [Concomitant]
     Active Substance: HYDROCORTISONE
     Route: 054
     Dates: start: 20171114, end: 20171114
  42. CHLORPHENIRAMINE. [Concomitant]
     Active Substance: CHLORPHENIRAMINE
     Dosage: 5MG/1ML
     Route: 042
     Dates: start: 20171117, end: 20171118
  43. NORMAL SALINE [Concomitant]
     Active Substance: SODIUM CHLORIDE
     Route: 041
     Dates: start: 20171113, end: 20171114
  44. KASCOAL [Concomitant]
     Route: 048
     Dates: start: 20171108, end: 20171121

REACTIONS (4)
  - Pneumonia [Fatal]
  - Gastroenteritis radiation [Fatal]
  - Prostate cancer [Fatal]
  - Duodenal ulcer haemorrhage [Unknown]

NARRATIVE: CASE EVENT DATE: 20150319
